FAERS Safety Report 18527891 (Version 1)
Quarter: 2020Q4

REPORT INFORMATION
  Report Type: Spontaneous
  Country: US (occurrence: US)
  Receive Date: 20201120
  Receipt Date: 20201120
  Transmission Date: 20210114
  Serious: No
  Sender: FDA-Public Use
  Company Number: US-GLENMARK PHARMACEUTICALS-2020GMK049547

PATIENT

DRUGS (3)
  1. FLUCONAZOLE. [Suspect]
     Active Substance: FLUCONAZOLE
     Indication: FUNGAL INFECTION
     Dosage: UNK
     Route: 065
     Dates: start: 20200731, end: 20200802
  2. CLOTRIMAZOLE AND BETAMETHASONE DIPROPIONATE CREAM USP, 1%/0.05% (BASE) [Suspect]
     Active Substance: BETAMETHASONE DIPROPIONATE\CLOTRIMAZOLE
     Indication: SKIN IRRITATION
     Dosage: UNK UNK, BID (USED ONCE OR TWICE AND EXPERIENCED THE SAME SIDE EFFECTS)
     Route: 061
     Dates: start: 202006, end: 202006
  3. CLOTRIMAZOLE AND BETAMETHASONE DIPROPIONATE CREAM USP, 1%/0.05% (BASE) [Suspect]
     Active Substance: BETAMETHASONE DIPROPIONATE\CLOTRIMAZOLE
     Indication: URINE ODOUR ABNORMAL
     Dosage: UNK UNK, BID
     Route: 061
     Dates: start: 20200903, end: 20200903

REACTIONS (9)
  - Malaise [Not Recovered/Not Resolved]
  - Cough [Unknown]
  - Application site pain [Not Recovered/Not Resolved]
  - Application site odour [Not Recovered/Not Resolved]
  - Product use in unapproved indication [Unknown]
  - Urinary incontinence [Not Recovered/Not Resolved]
  - Application site pruritus [Not Recovered/Not Resolved]
  - Nausea [Unknown]
  - Product odour abnormal [Unknown]

NARRATIVE: CASE EVENT DATE: 2020
